FAERS Safety Report 11690256 (Version 2)
Quarter: 2015Q4

REPORT INFORMATION
  Report Type: Report from Study
  Country: AR (occurrence: AR)
  Receive Date: 20151102
  Receipt Date: 20151119
  Transmission Date: 20160304
  Serious: Yes (Other)
  Sender: FDA-Public Use
  Company Number: PHHY2015AR141339

PATIENT
  Age: 84 Year
  Sex: Female

DRUGS (1)
  1. DIOVAN [Suspect]
     Active Substance: VALSARTAN
     Indication: HYPERTENSION
     Dosage: 1 DF (160 UNITS NOT REPORTED), QD
     Route: 065

REACTIONS (5)
  - Fall [Recovering/Resolving]
  - Memory impairment [Recovering/Resolving]
  - Hip fracture [Recovered/Resolved]
  - Humerus fracture [Recovered/Resolved]
  - Concomitant disease aggravated [Recovering/Resolving]

NARRATIVE: CASE EVENT DATE: 20140411
